FAERS Safety Report 5801739-3 (Version None)
Quarter: 2008Q3

REPORT INFORMATION
  Report Type: 
  Country: None (occurrence: None)
  Receive Date: 20080707
  Receipt Date: 20080627
  Transmission Date: 20090109
  Serious: Yes (Other)
  Sender: FDA-Public Use
  Company Number: D0056939A

PATIENT
  Age: 79 Year
  Sex: Female

DRUGS (7)
  1. SULTANOL [Suspect]
     Dosage: 3MG AS REQUIRED
     Route: 055
     Dates: start: 19800101
  2. SPIROPENT [Concomitant]
     Route: 048
  3. LANITOP [Concomitant]
     Route: 048
  4. TROMCARDIN [Concomitant]
     Route: 048
  5. THEOPHYLLINE [Concomitant]
     Route: 048
  6. SULTANOL [Concomitant]
     Route: 055
  7. BRONCHORETARD [Concomitant]
     Route: 048

REACTIONS (5)
  - ASTHMA [None]
  - DYSPNOEA [None]
  - NAUSEA [None]
  - PAROSMIA [None]
  - PHARMACEUTICAL PRODUCT COMPLAINT [None]
